FAERS Safety Report 5217140-X (Version None)
Quarter: 2007Q1

REPORT INFORMATION
  Report Type: 
  Country: None (occurrence: None)
  Receive Date: 20070124
  Receipt Date: 20070122
  Transmission Date: 20070707
  Serious: Yes (Other)
  Sender: FDA-Public Use
  Company Number: 2006R124496

PATIENT
  Age: 33 Year
  Sex: Female

DRUGS (1)
  1. CEFUROXIM-RATIOPHARM [Suspect]
     Indication: PYELONEPHRITIS
     Route: 048
     Dates: start: 20061023

REACTIONS (5)
  - ABDOMINAL PAIN [None]
  - DIARRHOEA [None]
  - DRUG EXPOSURE DURING PREGNANCY [None]
  - MUSCLE CONTRACTURE [None]
  - PSEUDOMEMBRANOUS COLITIS [None]
